FAERS Safety Report 24686589 (Version 1)
Quarter: 2024Q4

REPORT INFORMATION
  Report Type: Spontaneous
  Country: US (occurrence: US)
  Receive Date: 20241202
  Receipt Date: 20241202
  Transmission Date: 20250114
  Serious: Yes (Other)
  Sender: BRISTOL-MYERS SQUIBB COMPANY
  Company Number: US-BRISTOL-MYERS SQUIBB COMPANY-2024-186386

PATIENT
  Sex: Female

DRUGS (3)
  1. GABAPENTIN [Suspect]
     Active Substance: GABAPENTIN
     Indication: Product used for unknown indication
  2. REPOTRECTINIB [Interacting]
     Active Substance: REPOTRECTINIB
     Indication: Product used for unknown indication
  3. AZITHROMYCIN [Interacting]
     Active Substance: AZITHROMYCIN
     Indication: Product used for unknown indication

REACTIONS (18)
  - Gait inability [Unknown]
  - Disturbance in attention [Unknown]
  - Hallucination [Unknown]
  - Ataxia [Unknown]
  - Affective disorder [Unknown]
  - Insomnia [Unknown]
  - Constipation [Unknown]
  - Toxicity to various agents [Unknown]
  - Emotional disorder [Unknown]
  - Paraesthesia [Unknown]
  - Rash pruritic [Unknown]
  - Balance disorder [Unknown]
  - Dizziness [Unknown]
  - Suicidal ideation [Unknown]
  - Pneumonia [Unknown]
  - Seizure [Unknown]
  - Drug interaction [Unknown]
  - Feeling abnormal [Unknown]
